FAERS Safety Report 8545563-X (Version None)
Quarter: 2012Q3

REPORT INFORMATION
  Report Type: 
  Country: None (occurrence: None)
  Receive Date: 20120727
  Receipt Date: 20111027
  Transmission Date: 20120928
  Serious: No
  Sender: FDA-Public Use
  Company Number: US-ASTRAZENECA-2011SE64917

PATIENT
  Age: 48 Year
  Sex: Female
  Weight: 65.8 kg

DRUGS (9)
  1. PROZAC [Concomitant]
  2. REMRON [Concomitant]
     Indication: SLEEP DISORDER
  3. SEROQUEL [Suspect]
     Indication: BIPOLAR DISORDER
     Route: 048
  4. COPAXIL [Concomitant]
  5. MOOD STABILIZER [Concomitant]
     Indication: AFFECTIVE DISORDER
  6. SEROQUEL [Suspect]
     Route: 048
  7. FLUOXIL [Concomitant]
     Indication: THYROID DISORDER
  8. CLONIPINE [Concomitant]
  9. KEPPRA [Concomitant]
     Indication: CONVULSION

REACTIONS (3)
  - DRUG DOSE OMISSION [None]
  - MOOD SWINGS [None]
  - WEIGHT INCREASED [None]
